FAERS Safety Report 9903927 (Version 1)
Quarter: 2014Q1

REPORT INFORMATION
  Report Type: Spontaneous
  Country: US (occurrence: US)
  Receive Date: 20140218
  Receipt Date: 20140218
  Transmission Date: 20141002
  Serious: No
  Sender: FDA-Public Use
  Company Number: US-BIOGENIDEC-2014BI015601

PATIENT
  Age: 52 Year
  Sex: Male

DRUGS (1)
  1. TYSABRI [Suspect]
     Indication: MULTIPLE SCLEROSIS
     Route: 042
     Dates: start: 20130515

REACTIONS (4)
  - Irritability [Recovered/Resolved]
  - Mood swings [Recovered/Resolved]
  - Speech disorder [Recovered/Resolved]
  - Cognitive disorder [Recovered/Resolved]
